FAERS Safety Report 23066618 (Version 3)
Quarter: 2025Q1

REPORT INFORMATION
  Report Type: Report from Study
  Country: CA (occurrence: CA)
  Receive Date: 20231016
  Receipt Date: 20250217
  Transmission Date: 20250408
  Serious: Yes (Other)
  Sender: ABBVIE
  Company Number: CA-ABBVIE-5420335

PATIENT
  Age: 71 Year
  Sex: Male

DRUGS (59)
  1. VENETOCLAX [Suspect]
     Active Substance: VENETOCLAX
     Indication: Acute myeloid leukaemia
     Route: 048
     Dates: start: 20230227, end: 20230320
  2. VENETOCLAX [Suspect]
     Active Substance: VENETOCLAX
     Indication: Acute myeloid leukaemia
     Route: 048
     Dates: start: 20230224, end: 20230224
  3. VENETOCLAX [Suspect]
     Active Substance: VENETOCLAX
     Indication: Acute myeloid leukaemia
     Route: 048
     Dates: start: 20230225, end: 20230225
  4. VENETOCLAX [Suspect]
     Active Substance: VENETOCLAX
     Indication: Acute myeloid leukaemia
     Route: 048
     Dates: start: 20230226, end: 20230226
  5. VENETOCLAX [Suspect]
     Active Substance: VENETOCLAX
     Indication: Acute myeloid leukaemia
     Route: 048
     Dates: start: 20230918, end: 20230918
  6. VENETOCLAX [Suspect]
     Active Substance: VENETOCLAX
     Indication: Acute myeloid leukaemia
     Route: 048
     Dates: start: 20230919, end: 20230919
  7. VENETOCLAX [Suspect]
     Active Substance: VENETOCLAX
     Indication: Acute myeloid leukaemia
     Route: 048
     Dates: start: 20230920, end: 20230920
  8. VENETOCLAX [Suspect]
     Active Substance: VENETOCLAX
     Indication: Acute myeloid leukaemia
     Route: 048
     Dates: start: 20230921, end: 20230922
  9. VENETOCLAX [Suspect]
     Active Substance: VENETOCLAX
     Indication: Acute myeloid leukaemia
     Route: 048
     Dates: start: 20230925, end: 20231016
  10. VENETOCLAX [Suspect]
     Active Substance: VENETOCLAX
     Indication: Acute myeloid leukaemia
     Route: 048
  11. COVID-19 vaccine mRNA [Concomitant]
     Indication: COVID-19 immunisation
     Route: 030
  12. COVID-19 vaccine mRNA [Concomitant]
     Indication: COVID-19 immunisation
     Route: 030
  13. COVID-19 vaccine mRNA [Concomitant]
     Indication: COVID-19 immunisation
     Route: 030
  14. AZACITIDINE [Suspect]
     Active Substance: AZACITIDINE
     Indication: Acute myeloid leukaemia
     Dosage: FREQUENCY TEXT: EVERYDAY FOR 7 DAYS
     Route: 065
     Dates: start: 20230224, end: 20230302
  15. AZACITIDINE [Suspect]
     Active Substance: AZACITIDINE
     Indication: Acute myeloid leukaemia
     Route: 065
     Dates: start: 20230918, end: 20230922
  16. AZACITIDINE [Suspect]
     Active Substance: AZACITIDINE
     Indication: Acute myeloid leukaemia
     Route: 065
     Dates: start: 20230925, end: 20230926
  17. TYLENOL [Concomitant]
     Active Substance: ACETAMINOPHEN
     Indication: Pain
     Route: 048
     Dates: start: 2023
  18. FRAGMIN [Concomitant]
     Active Substance: DALTEPARIN SODIUM
     Indication: Superficial vein thrombosis
     Dosage: 5000 U
     Route: 058
     Dates: start: 20230215, end: 20230221
  19. FRAGMIN [Concomitant]
     Active Substance: DALTEPARIN SODIUM
     Indication: Superficial vein thrombosis
     Dosage: 7500 U
     Route: 058
     Dates: start: 20230222, end: 20230303
  20. AMOXICILLIN [Concomitant]
     Active Substance: AMOXICILLIN
     Indication: Pneumonia
     Route: 048
     Dates: start: 20230310, end: 20230314
  21. AMOXICILLIN [Concomitant]
     Active Substance: AMOXICILLIN
     Indication: Pneumonia
     Route: 048
     Dates: start: 20230314, end: 20230321
  22. POSACONAZOLE [Concomitant]
     Active Substance: POSACONAZOLE
     Indication: Antifungal prophylaxis
     Route: 048
     Dates: start: 20230227
  23. ALLOPURINOL [Concomitant]
     Active Substance: ALLOPURINOL
     Indication: Hyperuricaemia
     Route: 048
     Dates: start: 20230215, end: 20230303
  24. HYDREA [Concomitant]
     Active Substance: HYDROXYUREA
     Indication: Leukocytosis
     Route: 048
     Dates: start: 20230215, end: 20230221
  25. HYDREA [Concomitant]
     Active Substance: HYDROXYUREA
     Indication: Leukocytosis
     Route: 048
     Dates: start: 20230222, end: 20230224
  26. Reactine [Concomitant]
     Indication: Pruritus
     Route: 048
     Dates: start: 20230215, end: 20230303
  27. DESLORATADINE [Concomitant]
     Active Substance: DESLORATADINE
     Indication: Pruritus
     Route: 048
     Dates: start: 20230303
  28. CEFTRIAXONE [Concomitant]
     Active Substance: CEFTRIAXONE
     Indication: Pneumonia
     Route: 042
     Dates: start: 20230215, end: 20230217
  29. CIPROFLOXACIN [Concomitant]
     Active Substance: CIPROFLOXACIN
     Indication: Post procedural infection
     Route: 048
     Dates: start: 20230419, end: 20230501
  30. K dur [Concomitant]
     Indication: Hypokalaemia
     Route: 048
     Dates: start: 20231030, end: 20231031
  31. AZITHROMYCIN [Concomitant]
     Active Substance: AZITHROMYCIN
     Indication: Pneumonia
     Route: 048
     Dates: start: 20230215, end: 20230219
  32. PIPERACILLIN SODIUM\TAZOBACTAM SODIUM [Concomitant]
     Active Substance: PIPERACILLIN SODIUM\TAZOBACTAM SODIUM
     Indication: Pneumonia
     Route: 042
     Dates: start: 20230314, end: 20230315
  33. PIPERACILLIN SODIUM\TAZOBACTAM SODIUM [Concomitant]
     Active Substance: PIPERACILLIN SODIUM\TAZOBACTAM SODIUM
     Indication: Pneumonia
     Route: 042
     Dates: start: 20230218, end: 20230301
  34. DILAUDID [Concomitant]
     Active Substance: HYDROMORPHONE HYDROCHLORIDE
     Indication: Pain
     Route: 048
     Dates: start: 20230216, end: 20230301
  35. DILAUDID [Concomitant]
     Active Substance: HYDROMORPHONE HYDROCHLORIDE
     Indication: Pain
     Route: 048
     Dates: start: 20230301
  36. POLYETHYLENE GLYCOL 3350 [Concomitant]
     Active Substance: POLYETHYLENE GLYCOL 3350
     Indication: Constipation prophylaxis
     Route: 048
     Dates: start: 20230218
  37. CODEINE [Concomitant]
     Active Substance: CODEINE
     Indication: Influenza like illness
     Route: 048
     Dates: start: 20230221
  38. DICLOFENAC [Concomitant]
     Active Substance: DICLOFENAC
     Indication: Superficial vein thrombosis
     Route: 061
     Dates: start: 20230222, end: 20230303
  39. NYSTATIN [Concomitant]
     Active Substance: NYSTATIN
     Indication: Antifungal prophylaxis
     Route: 048
     Dates: start: 20230226
  40. ALBUTEROL [Concomitant]
     Active Substance: ALBUTEROL
     Indication: Pulmonary fibrosis
     Route: 055
     Dates: start: 20230310
  41. SPIRIVA [Concomitant]
     Active Substance: TIOTROPIUM BROMIDE MONOHYDRATE
     Indication: Pulmonary fibrosis
     Dosage: 2.5 MCG
     Route: 055
     Dates: start: 20230224
  42. PIPERACILLIN SODIUM\TAZOBACTAM SODIUM [Concomitant]
     Active Substance: PIPERACILLIN SODIUM\TAZOBACTAM SODIUM
     Indication: Post procedural infection
     Route: 042
     Dates: start: 20230327, end: 20230327
  43. PIPERACILLIN SODIUM\TAZOBACTAM SODIUM [Concomitant]
     Active Substance: PIPERACILLIN SODIUM\TAZOBACTAM SODIUM
     Indication: Post procedural infection
     Route: 042
     Dates: start: 20230328, end: 20230328
  44. PIPERACILLIN SODIUM\TAZOBACTAM SODIUM [Concomitant]
     Active Substance: PIPERACILLIN SODIUM\TAZOBACTAM SODIUM
     Indication: Post procedural infection
     Route: 042
     Dates: start: 20230403, end: 20230419
  45. DAPTOMYCIN [Concomitant]
     Active Substance: DAPTOMYCIN
     Indication: Post procedural infection
     Route: 042
     Dates: start: 20230327, end: 20230328
  46. CLINDAMYCIN [Concomitant]
     Active Substance: CLINDAMYCIN
     Indication: Post procedural infection
     Route: 042
     Dates: start: 20230327, end: 20230401
  47. VANCOMYCIN [Concomitant]
     Active Substance: VANCOMYCIN
     Indication: Post procedural infection
     Route: 042
     Dates: start: 20230330, end: 20230330
  48. VANCOMYCIN [Concomitant]
     Active Substance: VANCOMYCIN
     Indication: Post procedural infection
     Route: 042
     Dates: start: 20230331, end: 20230331
  49. VANCOMYCIN [Concomitant]
     Active Substance: VANCOMYCIN
     Indication: Post procedural infection
     Route: 042
     Dates: start: 20230331, end: 20230331
  50. VANCOMYCIN [Concomitant]
     Active Substance: VANCOMYCIN
     Indication: Post procedural infection
     Route: 042
     Dates: start: 20230331, end: 20230403
  51. AMPHOTERICIN B [Concomitant]
     Active Substance: AMPHOTERICIN B
     Indication: Post procedural infection
     Route: 042
     Dates: start: 20230331, end: 20230401
  52. TIGECYCLINE [Concomitant]
     Active Substance: TIGECYCLINE
     Indication: Post procedural infection
     Route: 042
     Dates: start: 20230331, end: 20230331
  53. TIGECYCLINE [Concomitant]
     Active Substance: TIGECYCLINE
     Indication: Post procedural infection
     Route: 042
     Dates: start: 20230331, end: 20230331
  54. TIGECYCLINE [Concomitant]
     Active Substance: TIGECYCLINE
     Indication: Post procedural infection
     Route: 042
     Dates: start: 20230401, end: 20230403
  55. DOXYCYCLINE [Concomitant]
     Active Substance: DOXYCYCLINE
     Indication: Pneumonia
     Route: 048
     Dates: start: 20230310, end: 20230316
  56. PIPERACILLIN SODIUM\TAZOBACTAM SODIUM [Concomitant]
     Active Substance: PIPERACILLIN SODIUM\TAZOBACTAM SODIUM
     Indication: Prophylaxis
     Route: 042
     Dates: start: 20230321, end: 20230321
  57. FILGRASTIM [Concomitant]
     Active Substance: FILGRASTIM
     Indication: Neutrophil count decreased
     Dosage: 480 MCG
     Route: 058
     Dates: start: 20240331, end: 20240424
  58. MEROPENEM [Concomitant]
     Active Substance: MEROPENEM
     Indication: Post procedural infection
     Route: 042
     Dates: start: 20230328, end: 20230328
  59. MEROPENEM [Concomitant]
     Active Substance: MEROPENEM
     Indication: Post procedural infection
     Route: 042
     Dates: start: 20230329, end: 20230331

REACTIONS (1)
  - Septic shock [Recovered/Resolved]

NARRATIVE: CASE EVENT DATE: 20230327
